FAERS Safety Report 16438165 (Version 1)
Quarter: 2019Q2

REPORT INFORMATION
  Report Type: Spontaneous
  Country: IT (occurrence: IT)
  Receive Date: 20190617
  Receipt Date: 20190617
  Transmission Date: 20190711
  Serious: Yes (Hospitalization)
  Sender: FDA-Public Use
  Company Number: IT-CELLTRION INC.-2019IT021719

PATIENT

DRUGS (1)
  1. INFLIXIMAB (UNKNOWN) [Suspect]
     Active Substance: INFLIXIMAB
     Indication: CROHN^S DISEASE
     Route: 065

REACTIONS (7)
  - Bronchopulmonary aspergillosis [Recovering/Resolving]
  - Pneumonia staphylococcal [Recovering/Resolving]
  - Atrial fibrillation [Recovered/Resolved]
  - Hypokalaemia [Recovered/Resolved]
  - Pulmonary tuberculosis [Recovering/Resolving]
  - Respiratory failure [Recovering/Resolving]
  - Pneumonia klebsiella [Recovering/Resolving]
